FAERS Safety Report 22188591 (Version 1)
Quarter: 2023Q2

REPORT INFORMATION
  Report Type: Spontaneous
  Country: IT (occurrence: IT)
  Receive Date: 20230409
  Receipt Date: 20230409
  Transmission Date: 20230722
  Serious: Yes (Disabling, Other)
  Sender: FDA-Public Use
  Company Number: IT-STRIDES ARCOLAB LIMITED-2023SP004780

PATIENT
  Age: 5 Year
  Sex: Female

DRUGS (11)
  1. METHOTREXATE [Suspect]
     Active Substance: METHOTREXATE
     Indication: Medulloblastoma
     Dosage: 8 G/M2, CYCLICAL (INDUCTION CHEMOTHERAPY)
     Route: 065
     Dates: start: 2018
  2. ETOPOSIDE [Suspect]
     Active Substance: ETOPOSIDE
     Indication: Medulloblastoma
     Dosage: 2.4 G/M2, CYCLICAL (INDUCTION CHEMOTHERAPY )
     Route: 065
     Dates: start: 2018
  3. DEXAMETHASONE [Suspect]
     Active Substance: DEXAMETHASONE
     Indication: Hypophysitis
     Dosage: 4 MILLIGRAM PER DAY
     Route: 065
     Dates: start: 2019
  4. VINORELBINE [Suspect]
     Active Substance: VINORELBINE TARTRATE
     Indication: Medulloblastoma
     Dosage: 20 MILLIGRAM/SQ. METER CYCLICAL (FIRST, THIRD, FOURTH CYCLE, INDUCTION CHEMOTHERAPY )
     Route: 065
     Dates: start: 2018
  5. VINORELBINE [Suspect]
     Active Substance: VINORELBINE TARTRATE
     Dosage: 20 MILLIGRAM/SQ. METER, EVERY 2 WEEKS
     Route: 065
     Dates: start: 2019
  6. VINORELBINE [Suspect]
     Active Substance: VINORELBINE TARTRATE
     Dosage: 20 MILLIGRAM/SQ. (30MIN INFUSION FOR 1 DAY) (MAINTENANCE CHEMOTHERAPY )
     Route: 065
     Dates: start: 2019
  7. VINORELBINE [Suspect]
     Active Substance: VINORELBINE TARTRATE
     Dosage: 20 MG/M2, EVERY 3 WEEKS (REPEATED EVERY 3 WEEKS) (MAINTENANCE CHEMOTHERAPY )
     Route: 065
     Dates: start: 2019
  8. CYCLOPHOSPHAMIDE [Suspect]
     Active Substance: CYCLOPHOSPHAMIDE
     Indication: Medulloblastoma
     Dosage: 4 G/M2, CYCLICAL (INDUCTION CHEMOTHERAPY)
     Route: 065
     Dates: start: 2018
  9. CARBOPLATIN [Suspect]
     Active Substance: CARBOPLATIN
     Indication: Medulloblastoma
     Dosage: 800 MILLIGRAM/SQ. METER, CYCLICAL (INDUCTION CHEMOTHERAPY)
     Route: 065
     Dates: start: 2018
  10. THIOTEPA [Suspect]
     Active Substance: THIOTEPA
     Indication: Medulloblastoma
     Dosage: 300 MILLIGRAM/SQ. METER PER DAY (HIGH DOSE) CONSOLIDATION CHEMOTHERAPY
     Route: 065
     Dates: start: 2018
  11. LOMUSTINE [Suspect]
     Active Substance: LOMUSTINE
     Indication: Medulloblastoma
     Dosage: 80 MILLIGRAM/SQ. METER EVERY 9 WEEKS (MAINTENANCE CHEMOTHERAPY)
     Route: 048
     Dates: start: 2019

REACTIONS (5)
  - Retinopathy [Unknown]
  - Blindness [Not Recovered/Not Resolved]
  - Leukoencephalopathy [Unknown]
  - Cytomegalovirus infection reactivation [Recovered/Resolved]
  - Off label use [Unknown]

NARRATIVE: CASE EVENT DATE: 20180101
